FAERS Safety Report 7333031-2 (Version None)
Quarter: 2011Q1

REPORT INFORMATION
  Report Type: 
  Country: None (occurrence: None)
  Receive Date: 20110304
  Receipt Date: 20110228
  Transmission Date: 20110831
  Serious: Yes (Hospitalization, Other)
  Sender: FDA-Public Use
  Company Number: US-PFIZER INC-2005116465

PATIENT
  Sex: Male

DRUGS (1)
  1. NEURONTIN [Suspect]
     Indication: PAIN
     Dosage: 800 MG TO 3500MG, EVERY DAY
     Dates: start: 20011203, end: 20040523

REACTIONS (11)
  - INSOMNIA [None]
  - ANXIETY [None]
  - AMNESIA [None]
  - DEPRESSION [None]
  - HYPOTRICHOSIS [None]
  - SUICIDAL IDEATION [None]
  - FATIGUE [None]
  - ANGER [None]
  - DISORIENTATION [None]
  - SUICIDE ATTEMPT [None]
  - PAIN [None]
